FAERS Safety Report 10830506 (Version 2)
Quarter: 2015Q1

REPORT INFORMATION
  Report Type: Report from Study
  Country: NL (occurrence: NL)
  Receive Date: 20150219
  Receipt Date: 20150225
  Transmission Date: 20150721
  Serious: Yes (Hospitalization)
  Sender: FDA-Public Use
  Company Number: PHHY2015NL016758

PATIENT
  Age: 72 Year
  Sex: Male

DRUGS (1)
  1. ZOMETA [Suspect]
     Active Substance: ZOLEDRONIC ACID
     Indication: RENAL CELL CARCINOMA
     Dosage: 4MG/100 ML, ONCE EVERY 4 WEEKS
     Route: 042

REACTIONS (1)
  - Pneumonia viral [Recovering/Resolving]

NARRATIVE: CASE EVENT DATE: 20150126
